FAERS Safety Report 8932487 (Version 1)
Quarter: 2012Q4

REPORT INFORMATION
  Report Type: Spontaneous
  Country: US (occurrence: None)
  Receive Date: 20121126
  Receipt Date: 20121126
  Transmission Date: 20130627
  Serious: Yes (Hospitalization)
  Sender: FDA-Public Use
  Company Number: None

PATIENT
  Age: 52 Year
  Sex: Male
  Weight: 129 kg

DRUGS (21)
  1. PIPERACILLIN-TAZOBACTAM (NO PREF. NAME) [Suspect]
     Indication: GANGRENE
     Route: 042
     Dates: start: 20121019, end: 20121025
  2. PIPERACILLIN-TAZOBACTAM (NO PREF. NAME) [Suspect]
     Indication: GANGRENE
     Route: 042
  3. LEVOFLOXACIN [Suspect]
     Indication: GANGRENE
     Route: 048
     Dates: start: 20121026, end: 20121030
  4. ASPIRIN [Concomitant]
  5. INSULIN GLARGINE [Concomitant]
  6. LISINOPRIL [Concomitant]
  7. SIMVASTATIN [Concomitant]
  8. NORCO [Concomitant]
  9. HYDROMORPHONE [Concomitant]
  10. INSULIN LISPRO [Concomitant]
  11. PERCOCET [Concomitant]
  12. SENNA PLUS [Concomitant]
  13. CEFAZOLIN [Concomitant]
  14. TDAP VACCINE [Concomitant]
  15. FAMOTIDINE [Concomitant]
  16. METOCLOPRAMIDE [Concomitant]
  17. METOPROLOL TARTRATE [Concomitant]
  18. SODIUM CHLORIDE 0.9% [Concomitant]
  19. D51/2NS CONTINUOUS INFUSION [Concomitant]
  20. ENOXAPARIN [Concomitant]
  21. IBUPROFEN [Concomitant]

REACTIONS (11)
  - Renal impairment [None]
  - Streptococcus test positive [None]
  - Staphylococcus test positive [None]
  - Corynebacterium test positive [None]
  - Clostridium test positive [None]
  - Peptostreptococcus test positive [None]
  - Blood creatinine increased [None]
  - Tubulointerstitial nephritis [None]
  - Kidney infection [None]
  - Rash macular [None]
  - Drug eruption [None]
